FAERS Safety Report 5323298-4 (Version None)
Quarter: 2007Q2

REPORT INFORMATION
  Report Type: 
  Country: None (occurrence: None)
  Receive Date: 20070220
  Receipt Date: 20061129
  Transmission Date: 20071010
  Serious: No
  Sender: FDA-Public Use
  Company Number: WAES 0611USA07422

PATIENT
  Age: 55 Year
  Sex: Female

DRUGS (13)
  1. JANUVIA [Suspect]
     Indication: DIABETES MELLITUS NON-INSULIN-DEPENDENT
     Dosage: 100 MG/DAILY/PO
     Route: 048
     Dates: start: 20061101, end: 20061127
  2. ATROVENT [Concomitant]
  3. CIPRO [Concomitant]
  4. FLAGYL [Concomitant]
  5. GLUCOTROL [Concomitant]
  6. PROPULSID [Concomitant]
  7. TORADOL [Concomitant]
  8. TROVAN [Concomitant]
  9. ZITHROMAX [Concomitant]
  10. ALBUTEROL [Concomitant]
  11. CLINDAMYCIN [Concomitant]
  12. PENICILLIN [Concomitant]
  13. PREDNISONE TAB [Concomitant]

REACTIONS (2)
  - PRURITUS [None]
  - URTICARIA [None]
